FAERS Safety Report 8895399 (Version 1)
Quarter: 2012Q4

REPORT INFORMATION
  Report Type: 
  Country: US (occurrence: US)
  Receive Date: 20121108
  Receipt Date: 20121108
  Transmission Date: 20130627
  Serious: Yes (Other)
  Sender: FDA-Public Use
  Company Number: US-BAYER-2012-117171

PATIENT

DRUGS (4)
  1. ALEVE CAPLET/TABLET,MIDOL EXTENDED RELIEF CAPLET [Suspect]
     Indication: MIGRAINE
  2. IBUPROFEN [Concomitant]
     Indication: MIGRAINE
     Dosage: 600 mg, UNK
  3. VICKS [Concomitant]
     Indication: MIGRAINE
  4. EUCALYPTUS OIL [Concomitant]
     Indication: MIGRAINE

REACTIONS (1)
  - Pancreatitis [None]
